FAERS Safety Report 8642944 (Version 3)
Quarter: 2012Q4

REPORT INFORMATION
  Report Type: 
  Country: US (occurrence: US)
  Receive Date: 20120629
  Receipt Date: 20120828
  Transmission Date: 20130627
  Serious: Yes (Other)
  Sender: FDA-Public Use
  Company Number: US-PFIZER INC-2012154805

PATIENT
  Age: 31 Year
  Sex: Male
  Weight: 78.9 kg

DRUGS (6)
  1. LYRICA [Suspect]
     Indication: PERIPHERAL NERVE INJURY
     Dosage: 300 mg, 2x/day
     Dates: start: 2007
  2. LYRICA [Suspect]
     Dosage: 200 mg, 2x/day
     Route: 048
     Dates: start: 20120502, end: 20120627
  3. LYRICA [Suspect]
     Dosage: 200 mg, 2x/day (take 1 capsule by mouth 2 times daily)
     Route: 048
     Dates: start: 20120627
  4. EFFEXOR XR [Suspect]
     Dosage: 75 mg, UNK
  5. CYMBALTA [Concomitant]
     Dosage: UNK
  6. NORCO [Concomitant]
     Dosage: UNK

REACTIONS (6)
  - Neuropathy peripheral [Unknown]
  - Hypoaesthesia [Not Recovered/Not Resolved]
  - Paraesthesia [Not Recovered/Not Resolved]
  - Pain in extremity [Unknown]
  - Arthralgia [Unknown]
  - Depression [Unknown]
